FAERS Safety Report 12328875 (Version 1)
Quarter: 2016Q2

REPORT INFORMATION
  Report Type: Spontaneous
  Country: US (occurrence: US)
  Receive Date: 20160503
  Receipt Date: 20160503
  Transmission Date: 20160815
  Serious: No
  Sender: FDA-Public Use
  Company Number: US-BEH-2015051426

PATIENT
  Sex: Female
  Weight: 40 kg

DRUGS (14)
  1. CELEXA [Concomitant]
     Active Substance: CITALOPRAM HYDROBROMIDE
  2. PROVIGIL [Concomitant]
     Active Substance: MODAFINIL
  3. LIDOCAINE/PRILOCAINE [Concomitant]
  4. LACTULOSE. [Concomitant]
     Active Substance: LACTULOSE
  5. MIRALAX [Concomitant]
     Active Substance: POLYETHYLENE GLYCOL 3350
  6. RITALIN [Concomitant]
     Active Substance: METHYLPHENIDATE HYDROCHLORIDE
  7. LAXATIVES [Concomitant]
     Active Substance: UNSPECIFIED INGREDIENT
  8. ZOFRAN [Concomitant]
     Active Substance: ONDANSETRON HYDROCHLORIDE
  9. SOFTENERS, EMOLLIENTS [Concomitant]
     Active Substance: EMOLLIENTS
  10. DIPHENHYDRAMINE. [Concomitant]
     Active Substance: DIPHENHYDRAMINE
  11. EPIPEN [Concomitant]
     Active Substance: EPINEPHRINE
  12. IRON [Concomitant]
     Active Substance: IRON
  13. HIZENTRA [Suspect]
     Active Substance: HUMAN IMMUNOGLOBULIN G
     Indication: IMMUNODEFICIENCY COMMON VARIABLE
     Route: 058
  14. MULTIVITAMINS [Concomitant]
     Active Substance: VITAMINS

REACTIONS (1)
  - Infusion site erythema [Unknown]
